FAERS Safety Report 9525242 (Version 1)
Quarter: 2013Q3

REPORT INFORMATION
  Report Type: Spontaneous
  Country: US (occurrence: US)
  Receive Date: 20130916
  Receipt Date: 20130916
  Transmission Date: 20140515
  Serious: No
  Sender: FDA-Public Use
  Company Number: US-PFIZER INC-2013262877

PATIENT
  Age: 51 Year
  Sex: Female
  Weight: 72.56 kg

DRUGS (5)
  1. ADVIL PM [Suspect]
     Indication: MIGRAINE
     Dosage: 200 MG, AS NEEDED
  2. ADVIL PM [Suspect]
     Indication: SLEEP DISORDER
  3. INDOMETHACIN [Suspect]
     Indication: MIGRAINE
     Dosage: 50 MG, UNK
  4. CYTOMEL [Concomitant]
     Indication: HYPOTHYROIDISM
     Dosage: 12 MCG DAILY
  5. IMITREX [Concomitant]
     Indication: MIGRAINE
     Dosage: UNK

REACTIONS (3)
  - Drug ineffective [Unknown]
  - Poor quality drug administered [Unknown]
  - Product physical issue [Unknown]
